FAERS Safety Report 5110175-7 (Version None)
Quarter: 2006Q3

REPORT INFORMATION
  Report Type: 
  Country: None (occurrence: None)
  Receive Date: 20060921
  Receipt Date: 20040805
  Transmission Date: 20061208
  Serious: Yes (Death)
  Sender: FDA-Public Use
  Company Number: 200417749GDDC

PATIENT
  Age: 25 Year
  Sex: Male

DRUGS (1)
  1. DDAVP [Suspect]
     Indication: ENURESIS
     Dates: start: 19970101

REACTIONS (10)
  - BRAIN OEDEMA [None]
  - COMA [None]
  - CONTUSION [None]
  - CONVULSION [None]
  - FALL [None]
  - HEAD INJURY [None]
  - HYPONATRAEMIA [None]
  - INTRACRANIAL PRESSURE INCREASED [None]
  - STATUS EPILEPTICUS [None]
  - SUBDURAL HAEMATOMA [None]
